FAERS Safety Report 23718035 (Version 1)
Quarter: 2024Q2

REPORT INFORMATION
  Report Type: Spontaneous
  Country: SE (occurrence: SE)
  Receive Date: 20240408
  Receipt Date: 20240408
  Transmission Date: 20240716
  Serious: Yes (Other)
  Sender: FDA-Public Use
  Company Number: None

PATIENT
  Age: 72 Year
  Sex: Female

DRUGS (6)
  1. AMLODIPINE [Suspect]
     Active Substance: AMLODIPINE BESYLATE
     Indication: Product used for unknown indication
     Dosage: TOOK A SINGLE TABLET A FEW DAYS AGO
     Route: 065
     Dates: start: 202401
  2. NAPROXEN [Suspect]
     Active Substance: NAPROXEN
     Indication: Product used for unknown indication
     Dosage: UNK
     Route: 065
     Dates: start: 202401, end: 20240111
  3. IBUPROFEN [Suspect]
     Active Substance: IBUPROFEN
     Indication: Back pain
     Dosage: UNK
     Route: 065
     Dates: start: 20240102
  4. AMITRIPTYLINE [Suspect]
     Active Substance: AMITRIPTYLINE
     Indication: Back pain
     Dosage: UNK
     Route: 065
     Dates: start: 20240102, end: 20240111
  5. LOCOID [Concomitant]
     Active Substance: HYDROCORTISONE BUTYRATE
     Dosage: UNK
     Route: 065
  6. UREA [Concomitant]
     Active Substance: UREA
     Dosage: UNK
     Route: 065

REACTIONS (6)
  - Eye discharge [Unknown]
  - Dry eye [Unknown]
  - Neoplasm skin [Unknown]
  - Dermatitis exfoliative generalised [Recovering/Resolving]
  - Eye pain [Unknown]
  - Fatigue [Unknown]

NARRATIVE: CASE EVENT DATE: 20240101
